FAERS Safety Report 11263019 (Version 1)
Quarter: 2015Q3

REPORT INFORMATION
  Report Type: Spontaneous
  Country: None (occurrence: DK)
  Receive Date: 20150710
  Receipt Date: 20150710
  Transmission Date: 20151125
  Serious: Yes (Life-Threatening, Hospitalization)
  Sender: FDA-Public Use
  Company Number: DK-MEDAC PHARMA, INC.-1040473

PATIENT
  Age: 83 Year
  Sex: Female

DRUGS (2)
  1. METEX [Suspect]
     Active Substance: METFORMIN HYDROCHLORIDE
     Indication: RHEUMATOID ARTHRITIS
     Dates: start: 20130624, end: 20150614
  2. LITAREX [Suspect]
     Active Substance: LITHIUM CITRATE
     Route: 048
     Dates: start: 20081029, end: 20150614

REACTIONS (9)
  - Dehydration [Unknown]
  - Infection [Unknown]
  - Anaemia [Unknown]
  - Toxicity to various agents [Recovered/Resolved]
  - Bone marrow failure [Unknown]
  - Hypernatraemia [Unknown]
  - Haemorrhage [Unknown]
  - Thrombocytopenia [Unknown]
  - Leukopenia [Unknown]

NARRATIVE: CASE EVENT DATE: 201506
